FAERS Safety Report 9839940 (Version 1)
Quarter: 2014Q1

REPORT INFORMATION
  Report Type: Spontaneous
  Country: US (occurrence: US)
  Receive Date: 20140124
  Receipt Date: 20140124
  Transmission Date: 20141002
  Serious: Yes (Death, Other)
  Sender: FDA-Public Use
  Company Number: US-PAR PHARMACEUTICAL, INC-2014SCPR008183

PATIENT
  Age: 24 Year
  Sex: Male

DRUGS (3)
  1. BUPROPION HCL XL TABLETS [Suspect]
     Indication: PRODUCT USED FOR UNKNOWN INDICATION
     Dosage: 90 DF, UNKNOWN
     Route: 048
  2. METHYLPHENIDATE /00083802/ [Suspect]
     Indication: PRODUCT USED FOR UNKNOWN INDICATION
     Dosage: 10 DF, UNKNOWN
     Route: 048
  3. POLYETHYLENE GLYCOL 3350 [Suspect]
     Indication: PRODUCT USED FOR UNKNOWN INDICATION
     Dosage: UNK, UNKNOWN
     Route: 048

REACTIONS (9)
  - Death [Fatal]
  - Cardiac arrest [Fatal]
  - Aspiration [Fatal]
  - Grand mal convulsion [Fatal]
  - Completed suicide [Fatal]
  - Confusional state [Unknown]
  - Tremor [Unknown]
  - Vomiting [Unknown]
  - Agitation [Unknown]
